FAERS Safety Report 10970028 (Version 1)
Quarter: 2015Q1

REPORT INFORMATION
  Report Type: Spontaneous
  Country: US (occurrence: None)
  Receive Date: 20150330
  Receipt Date: 20150330
  Transmission Date: 20150721
  Serious: No
  Sender: FDA-Public Use
  Company Number: None

PATIENT
  Age: 64 Year
  Sex: Female
  Weight: 84.37 kg

DRUGS (12)
  1. MODAFANIL 200MG [Concomitant]
     Active Substance: MODAFINIL
  2. FLOVENT [Concomitant]
     Active Substance: FLUTICASONE PROPIONATE
  3. PRISTIQ EXTENDED RELEASE [Concomitant]
     Active Substance: DESVENLAFAXINE SUCCINATE
  4. FERROUS SULFATE [Concomitant]
     Active Substance: FERROUS SULFATE\FERROUS SULFATE, DRIED
  5. C-PAP MACHINE [Concomitant]
     Active Substance: DEVICE
  6. NEXIUM [Suspect]
     Active Substance: ESOMEPRAZOLE MAGNESIUM
     Indication: GASTROOESOPHAGEAL REFLUX DISEASE
     Dosage: 40 MG ONCE DAILY TAKEN BY MOUTH
  7. XANAX [Concomitant]
     Active Substance: ALPRAZOLAM
  8. WARFARIN [Concomitant]
     Active Substance: WARFARIN
  9. VITAMIN D2 [Concomitant]
     Active Substance: ERGOCALCIFEROL
  10. VITAMIN D2 [Concomitant]
     Active Substance: ERGOCALCIFEROL
  11. NEXIUM [Suspect]
     Active Substance: ESOMEPRAZOLE MAGNESIUM
     Indication: PROPHYLAXIS
     Dosage: 40 MG ONCE DAILY TAKEN BY MOUTH
  12. IRON [Concomitant]
     Active Substance: IRON

REACTIONS (4)
  - Diarrhoea [None]
  - Weight decreased [None]
  - Pulmonary embolism [None]
  - Blood 25-hydroxycholecalciferol decreased [None]

NARRATIVE: CASE EVENT DATE: 20150327
